FAERS Safety Report 4543430-X (Version None)
Quarter: 2005Q1

REPORT INFORMATION
  Report Type: 
  Country: None (occurrence: None)
  Receive Date: 20050103
  Receipt Date: 20041007
  Transmission Date: 20050727
  Serious: Yes (Life-Threatening, Disabling)
  Sender: FDA-Public Use
  Company Number: US-MERCK-0410USA01026

PATIENT
  Age: 36 Year
  Sex: Female
  Weight: 90 kg

DRUGS (4)
  1. VIOXX [Suspect]
     Route: 048
     Dates: start: 20031031, end: 20040101
  2. VIOXX [Suspect]
     Route: 048
     Dates: start: 20031031, end: 20040101
  3. ZOLOFT [Concomitant]
     Route: 065
  4. HYDROCODONE HYDROCHLORIDE [Concomitant]
     Route: 065

REACTIONS (5)
  - ANXIETY [None]
  - HAEMATOCRIT DECREASED [None]
  - OVERDOSE [None]
  - PANIC ATTACK [None]
  - STRESS [None]
